FAERS Safety Report 17553542 (Version 4)
Quarter: 2020Q3

REPORT INFORMATION
  Report Type: Spontaneous
  Country: US (occurrence: US)
  Receive Date: 20200317
  Receipt Date: 20200729
  Transmission Date: 20201102
  Serious: Yes (Other)
  Sender: FDA-Public Use
  Company Number: US-TAKEDA-2020TUS014549

PATIENT

DRUGS (51)
  1. NEXIUM [Suspect]
     Active Substance: ESOMEPRAZOLE MAGNESIUM
     Indication: DYSPEPSIA
     Dosage: UNK
     Route: 048
     Dates: start: 2004
  2. AMLODIPINE [Concomitant]
     Active Substance: AMLODIPINE BESYLATE
     Indication: HYPERTENSION
     Dosage: UNK
     Dates: start: 2005
  3. METFORMIN [Concomitant]
     Active Substance: METFORMIN HYDROCHLORIDE
     Indication: DIABETES MELLITUS
     Dosage: UNK
     Dates: start: 2005
  4. TAMSULOSIN [Concomitant]
     Active Substance: TAMSULOSIN
     Indication: PROSTATIC DISORDER
  5. MYLANTA                            /00416501/ [Concomitant]
     Dosage: UNK
     Dates: start: 2018, end: 2019
  6. NEXIUM [Suspect]
     Active Substance: ESOMEPRAZOLE MAGNESIUM
     Indication: GASTROOESOPHAGEAL REFLUX DISEASE
     Dosage: UNK
     Route: 048
     Dates: start: 200212
  7. OMEPRAZOLE. [Suspect]
     Active Substance: OMEPRAZOLE
     Indication: GASTROOESOPHAGEAL REFLUX DISEASE
     Dosage: 20 MILLIGRAM, QD
     Route: 048
     Dates: start: 201607, end: 201608
  8. OMEPRAZOLE. [Suspect]
     Active Substance: OMEPRAZOLE
     Dosage: 20 MILLIGRAM, QD
     Route: 048
     Dates: start: 201407, end: 201409
  9. METFORMIN [Concomitant]
     Active Substance: METFORMIN HYDROCHLORIDE
     Indication: DIABETES MELLITUS
  10. ZANTAC [Concomitant]
     Active Substance: RANITIDINE HYDROCHLORIDE
     Dosage: UNK
     Dates: start: 2008, end: 2010
  11. PREVACID [Suspect]
     Active Substance: LANSOPRAZOLE
     Dosage: UNK
     Route: 048
     Dates: start: 200610, end: 200612
  12. PROTONIX [Suspect]
     Active Substance: PANTOPRAZOLE SODIUM
     Indication: GASTROOESOPHAGEAL REFLUX DISEASE
     Dosage: UNK
     Route: 048
     Dates: start: 200212
  13. PROTONIX [Suspect]
     Active Substance: PANTOPRAZOLE SODIUM
     Dosage: UNK
     Route: 048
     Dates: start: 200610, end: 200612
  14. ASPIRIN                            /00002701/ [Concomitant]
     Active Substance: ASPIRIN
     Indication: CARDIAC DISORDER
     Dosage: UNK
     Dates: start: 2000
  15. MYLANTA [Concomitant]
     Active Substance: ALUMINUM HYDROXIDE\DIMETHICONE\MAGNESIUM HYDROXIDE
     Indication: ANTACID THERAPY
     Dosage: UNK, AS DIRECTED
     Dates: start: 2018, end: 2019
  16. PREVACID [Suspect]
     Active Substance: LANSOPRAZOLE
     Indication: DYSPEPSIA
     Dosage: UNK
     Route: 048
     Dates: start: 2004
  17. PREVACID [Suspect]
     Active Substance: LANSOPRAZOLE
     Dosage: UNK
     Route: 048
     Dates: start: 2009
  18. PREVACID [Suspect]
     Active Substance: LANSOPRAZOLE
     Dosage: 30 MILLIGRAM, BID
     Route: 048
     Dates: start: 200711
  19. PROTONIX [Suspect]
     Active Substance: PANTOPRAZOLE SODIUM
     Dosage: UNK
     Route: 048
     Dates: start: 2007
  20. NEXIUM [Suspect]
     Active Substance: ESOMEPRAZOLE MAGNESIUM
     Dosage: UNK
     Route: 048
     Dates: start: 2007
  21. ZANTAC [Concomitant]
     Active Substance: RANITIDINE HYDROCHLORIDE
     Dosage: UNK
     Dates: start: 2008, end: 2010
  22. PREVACID [Suspect]
     Active Substance: LANSOPRAZOLE
     Indication: GASTROOESOPHAGEAL REFLUX DISEASE
     Dosage: UNK
     Route: 048
     Dates: start: 200212
  23. PREVACID [Suspect]
     Active Substance: LANSOPRAZOLE
     Dosage: UNK
     Route: 048
     Dates: start: 2005
  24. PREVACID [Suspect]
     Active Substance: LANSOPRAZOLE
     Dosage: UNK
     Route: 048
     Dates: start: 2007
  25. PROTONIX [Suspect]
     Active Substance: PANTOPRAZOLE SODIUM
     Indication: DYSPEPSIA
     Dosage: UNK
     Route: 048
     Dates: start: 2004
  26. LANSOPRAZOLE. [Suspect]
     Active Substance: LANSOPRAZOLE
     Indication: DYSPEPSIA
  27. NEXIUM [Suspect]
     Active Substance: ESOMEPRAZOLE MAGNESIUM
     Dosage: UNK
     Route: 048
     Dates: start: 2008
  28. NEXIUM [Suspect]
     Active Substance: ESOMEPRAZOLE MAGNESIUM
     Dosage: UNK
     Route: 048
     Dates: start: 2006, end: 2018
  29. OMEPRAZOLE. [Suspect]
     Active Substance: OMEPRAZOLE
     Dosage: 20 MILLIGRAM, BID
     Route: 048
     Dates: start: 201408, end: 201411
  30. OMEPRAZOLE. [Suspect]
     Active Substance: OMEPRAZOLE
     Dosage: 20 MILLIGRAM, QD
     Route: 048
     Dates: start: 201407, end: 201408
  31. OMEPRAZOLE. [Suspect]
     Active Substance: OMEPRAZOLE
     Dosage: 20 MILLIGRAM, BID
     Route: 048
     Dates: start: 201311, end: 201403
  32. OMEPRAZOLE. [Suspect]
     Active Substance: OMEPRAZOLE
     Dosage: 20 MILLIGRAM, QD
     Route: 048
     Dates: start: 201307, end: 201308
  33. TAMSULOSIN [Concomitant]
     Active Substance: TAMSULOSIN
     Indication: PROSTATIC DISORDER
     Dosage: UNK
     Dates: start: 2010
  34. PROSTATE COMPLEX [Concomitant]
     Indication: PROSTATIC DISORDER
     Dosage: UNK
     Dates: start: 202005
  35. RANITIDINE. [Concomitant]
     Active Substance: RANITIDINE
     Dosage: UNK
     Dates: start: 2012
  36. ASPIRIN. [Concomitant]
     Active Substance: ASPIRIN
     Indication: CARDIOVASCULAR EVENT PROPHYLAXIS
     Dosage: 81 MG
     Dates: start: 2000
  37. PREVACID [Suspect]
     Active Substance: LANSOPRAZOLE
     Dosage: UNK
     Route: 048
     Dates: start: 2008
  38. PROTONIX [Suspect]
     Active Substance: PANTOPRAZOLE SODIUM
     Dosage: UNK
     Route: 048
     Dates: start: 2008
  39. PANTOPRAZOLE [Suspect]
     Active Substance: PANTOPRAZOLE
     Indication: DYSPEPSIA
     Dosage: 40 MILLIGRAM, QD
     Route: 048
     Dates: start: 202004
  40. PANTOPRAZOLE [Suspect]
     Active Substance: PANTOPRAZOLE
     Indication: GASTROOESOPHAGEAL REFLUX DISEASE
  41. NEXIUM [Suspect]
     Active Substance: ESOMEPRAZOLE MAGNESIUM
     Dosage: UNK
     Route: 048
     Dates: start: 200610, end: 200612
  42. NEXIUM [Suspect]
     Active Substance: ESOMEPRAZOLE MAGNESIUM
     Dosage: UNK
     Route: 048
     Dates: start: 2009
  43. OMEPRAZOLE. [Suspect]
     Active Substance: OMEPRAZOLE
     Dosage: 20 MILLIGRAM, BID
     Route: 048
     Dates: start: 201310, end: 201311
  44. GLIPIZIDE. [Concomitant]
     Active Substance: GLIPIZIDE
     Indication: DIABETES MELLITUS
     Dosage: UNK
     Dates: start: 2005
  45. PROTONIX [Suspect]
     Active Substance: PANTOPRAZOLE SODIUM
     Indication: GASTROOESOPHAGEAL REFLUX DISEASE
     Dosage: 40 MILLIGRAM, QD
     Route: 048
     Dates: start: 200504
  46. PROTONIX [Suspect]
     Active Substance: PANTOPRAZOLE SODIUM
     Dosage: UNK
     Route: 048
     Dates: start: 2009
  47. LANSOPRAZOLE. [Suspect]
     Active Substance: LANSOPRAZOLE
     Indication: GASTROOESOPHAGEAL REFLUX DISEASE
     Dosage: UNK
     Route: 048
     Dates: start: 200801, end: 200802
  48. NEXIUM [Suspect]
     Active Substance: ESOMEPRAZOLE MAGNESIUM
     Dosage: UNK
     Route: 048
     Dates: start: 2005
  49. OMEPRAZOLE. [Suspect]
     Active Substance: OMEPRAZOLE
     Indication: DYSPEPSIA
     Dosage: 40 MILLIGRAM, QD
     Route: 048
     Dates: start: 201508, end: 201509
  50. OMEPRAZOLE. [Suspect]
     Active Substance: OMEPRAZOLE
     Dosage: 20 MILLIGRAM, BID
     Route: 048
     Dates: start: 201309, end: 201310
  51. GLIPIZIDE. [Concomitant]
     Active Substance: GLIPIZIDE
     Indication: DIABETES MELLITUS

REACTIONS (2)
  - Acute kidney injury [Unknown]
  - Renal injury [Not Recovered/Not Resolved]

NARRATIVE: CASE EVENT DATE: 2018
